FAERS Safety Report 7311115-2 (Version None)
Quarter: 2011Q1

REPORT INFORMATION
  Report Type: 
  Country: None (occurrence: None)
  Receive Date: 20110119
  Receipt Date: 20100611
  Transmission Date: 20110831
  Serious: No
  Sender: FDA-Public Use
  Company Number: A-NJ2010-36745

PATIENT
  Age: 61 Year
  Sex: Female

DRUGS (2)
  1. TRACLEER [Suspect]
     Indication: PULMONARY ARTERIAL HYPERTENSION
     Dosage: 62.5 MG, BID, ORAL
     Route: 048
     Dates: start: 20100503, end: 20100517
  2. REVATIO [Concomitant]

REACTIONS (4)
  - OEDEMA [None]
  - HEADACHE [None]
  - DYSPNOEA [None]
  - EAR DISCOMFORT [None]
